FAERS Safety Report 4686110-2 (Version None)
Quarter: 2005Q2

REPORT INFORMATION
  Report Type: 
  Country: None (occurrence: None)
  Receive Date: 20050603
  Receipt Date: 20050524
  Transmission Date: 20051028
  Serious: Yes (Hospitalization)
  Sender: FDA-Public Use
  Company Number: HQWYE503404MAY05

PATIENT
  Age: 61 Year
  Sex: Male

DRUGS (7)
  1. TAZOBAC (PIPERACILLIN/TAZOBACTAM) [Suspect]
     Dosage: 4.5 G 3X PER 1 DAY
     Route: 041
     Dates: start: 20050128, end: 20050304
  2. CEFTRIAXONE [Suspect]
     Indication: BILE DUCT STONE
     Dosage: 2 G 1X PER 1 DAY, PARENTERAL
     Route: 051
     Dates: start: 20050108, end: 20050117
  3. CEFTRIAXONE [Suspect]
     Indication: CHOLANGITIS
     Dosage: 2 G 1X PER 1 DAY, PARENTERAL
     Route: 051
     Dates: start: 20050108, end: 20050117
  4. PANTOZOL   DELAYED RELEASE) [Suspect]
     Dosage: 40 MG 1X PER 1 DAY, ORAL
     Route: 048
     Dates: start: 20050107, end: 20050228
  5. PREDNISONE [Concomitant]
  6. DE-URSIL         (URSODEXYCHOLIC ACID) [Concomitant]
  7. HYOSCINE HBR HYT [Concomitant]

REACTIONS (3)
  - COAGULATION TIME PROLONGED [None]
  - HEPATIC FIBROSIS [None]
  - HEPATITIS CHOLESTATIC [None]
